FAERS Safety Report 7743668-4 (Version None)
Quarter: 2011Q3

REPORT INFORMATION
  Report Type: 
  Country: None (occurrence: None)
  Receive Date: 20110912
  Receipt Date: 20110906
  Transmission Date: 20111222
  Serious: Yes (Death, Hospitalization)
  Sender: FDA-Public Use
  Company Number: JP-MERCK-1107USA02827

PATIENT
  Age: 78 Year
  Sex: Male

DRUGS (5)
  1. ASPIRIN [Concomitant]
     Dosage: DAILY DOSAGE UNKNOWN
     Route: 048
  2. HYZAAR [Concomitant]
     Dosage: DAILY DOSAGE UNKNOWN
     Route: 048
  3. COZAAR [Suspect]
     Dosage: DAILY DOSAGE UNKNOWN
     Route: 048
  4. NORVASC [Concomitant]
     Dosage: DAILY DOSAGE UNKNOWN
     Route: 048
  5. OMEPRAZOLE [Concomitant]
     Dosage: DAILY DOSAGE UNKNOWN
     Route: 048

REACTIONS (1)
  - ANGIOEDEMA [None]
